FAERS Safety Report 9009951 (Version 3)
Quarter: 2016Q3

REPORT INFORMATION
  Report Type: Spontaneous
  Country: US (occurrence: US)
  Receive Date: 20130110
  Receipt Date: 20160914
  Transmission Date: 20161109
  Serious: Yes (Hospitalization, Other)
  Sender: FDA-Public Use
  Company Number: US-009507513-1301USA002312

PATIENT
  Sex: Female

DRUGS (2)
  1. FOSAMAX [Suspect]
     Active Substance: ALENDRONATE SODIUM
     Indication: OSTEOPOROSIS
     Dosage: 70 MG, UNK
     Route: 048
     Dates: start: 1995, end: 20101011
  2. ALENDRONATE SODIUM. [Suspect]
     Active Substance: ALENDRONATE SODIUM
     Indication: OSTEOPOROSIS
     Dosage: 70 MG, UNK
     Route: 065
     Dates: start: 20081201

REACTIONS (14)
  - Haemorrhagic anaemia [Unknown]
  - Hysterectomy [Unknown]
  - Femur fracture [Recovering/Resolving]
  - Depression [Not Recovered/Not Resolved]
  - Ankle fracture [Unknown]
  - Appendicectomy [Unknown]
  - Deep vein thrombosis [Unknown]
  - Bone pain [Unknown]
  - Blood cholesterol increased [Unknown]
  - Hyperlipidaemia [Unknown]
  - Osteoarthritis [Unknown]
  - Fall [Unknown]
  - Emotional disorder [Not Recovered/Not Resolved]
  - Back pain [Unknown]

NARRATIVE: CASE EVENT DATE: 2000
